FAERS Safety Report 9098353 (Version 1)
Quarter: 2013Q1

REPORT INFORMATION
  Report Type: Report from Study
  Country: BE (occurrence: BE)
  Receive Date: 20130213
  Receipt Date: 20130213
  Transmission Date: 20140127
  Serious: Yes (Hospitalization)
  Sender: FDA-Public Use
  Company Number: BE-EISAI INC-E7389-00271-CLI-BE

PATIENT
  Age: 60 Year
  Sex: Male
  Weight: 109 kg

DRUGS (11)
  1. E7389 (BOLD) [Suspect]
     Indication: LEIOMYOSARCOMA
     Route: 041
     Dates: start: 20070919, end: 20070926
  2. E7389 (BOLD) [Suspect]
     Route: 041
     Dates: start: 20071010
  3. ATENOLOL CHLONETALADAN [Concomitant]
     Indication: HYPERTENSION
     Dosage: 50/125MG
     Route: 048
  4. ATENOLOL CHLONETALADAN [Concomitant]
     Indication: MUSCLE SPASMS
  5. CLONAZIPAM [Concomitant]
     Indication: INSOMNIA
     Route: 048
  6. OMEPRAZOLE [Concomitant]
     Indication: HIATUS HERNIA
     Route: 048
  7. OMEPRAZOLE [Concomitant]
     Indication: GASTROOESOPHAGEAL REFLUX DISEASE
  8. BROMAZEPAM [Concomitant]
     Indication: INSOMNIA
     Route: 048
  9. NADIOPASINE [Concomitant]
     Indication: VARICOSE VEIN
  10. THEBACON [Concomitant]
     Indication: COUGH
     Route: 048
     Dates: start: 2007
  11. MALUGEL [Concomitant]
     Indication: CONSTIPATION
     Route: 048
     Dates: start: 2007

REACTIONS (2)
  - Pharyngitis [Recovered/Resolved]
  - Neutropenia [Recovered/Resolved]
